FAERS Safety Report 8582532-8 (Version None)
Quarter: 2012Q3

REPORT INFORMATION
  Report Type: 
  Country: None (occurrence: None)
  Receive Date: 20120809
  Receipt Date: 20120801
  Transmission Date: 20120928
  Serious: Yes (Other)
  Sender: FDA-Public Use
  Company Number: DE-ROCHE-1081878

PATIENT
  Sex: Female
  Weight: 70 kg

DRUGS (8)
  1. MABTHERA [Suspect]
     Route: 042
     Dates: start: 20120621, end: 20120621
  2. BENDAMUSTINE HYDROCHLORIDE [Concomitant]
     Indication: B-CELL LYMPHOMA
     Route: 042
     Dates: start: 20120703
  3. MABTHERA [Suspect]
     Indication: B-CELL LYMPHOMA
     Route: 042
     Dates: start: 20120620, end: 20120620
  4. MABTHERA [Suspect]
     Route: 042
     Dates: start: 20120622, end: 20120622
  5. CLEMASTINE FUMARATE [Concomitant]
     Dates: start: 20120620
  6. PREDNISONE TAB [Concomitant]
     Indication: PROPHYLAXIS
     Dates: start: 20120611
  7. PANTOPRAZOLE [Concomitant]
     Indication: PROPHYLAXIS
     Dates: start: 20120611
  8. ACETAMINOPHEN [Concomitant]
     Indication: PROPHYLAXIS
     Dates: start: 20120620

REACTIONS (5)
  - GAMMA-GLUTAMYLTRANSFERASE INCREASED [None]
  - ASPARTATE AMINOTRANSFERASE INCREASED [None]
  - ALANINE AMINOTRANSFERASE INCREASED [None]
  - PRURITUS [None]
  - FATIGUE [None]
